FAERS Safety Report 8774767 (Version 1)
Quarter: 2012Q4

REPORT INFORMATION
  Report Type: 
  Country: GB (occurrence: GB)
  Receive Date: 20120910
  Receipt Date: 20120910
  Transmission Date: 20130627
  Serious: Yes (Other)
  Sender: FDA-Public Use
  Company Number: GB-ACCORD-014609

PATIENT
  Age: 40 Year
  Sex: Female
  Weight: 62 kg

DRUGS (6)
  1. QUETIAPINE FUMARATE [Suspect]
     Indication: DRUG USE FOR UNKNOWN INDICATION
     Dates: start: 20120601
  2. BECLOMETASONE [Concomitant]
     Dates: start: 20120528, end: 20120625
  3. SALBUTAMOL [Concomitant]
     Dates: start: 20120528, end: 20120625
  4. SODIUM CROMOGLICATE [Concomitant]
     Dates: start: 20120528, end: 20120531
  5. ERYTHROMYCIN [Concomitant]
     Dates: start: 20120626, end: 20120711
  6. HYDROMOL [Concomitant]

REACTIONS (2)
  - Platelet count decreased [Recovering/Resolving]
  - Contusion [Recovering/Resolving]
